FAERS Safety Report 24448438 (Version 1)
Quarter: 2024Q4

REPORT INFORMATION
  Report Type: Spontaneous
  Country: FR (occurrence: FR)
  Receive Date: 20241017
  Receipt Date: 20241017
  Transmission Date: 20250115
  Serious: Yes (Life-Threatening, Other)
  Sender: CELLTRION
  Company Number: None

PATIENT

DRUGS (3)
  1. RITUXIMAB [Suspect]
     Active Substance: RITUXIMAB
     Indication: Multiple sclerosis
     Dosage: 500 MG, EVERY 6 MONTHS
     Route: 042
     Dates: start: 20210114, end: 20230713
  2. DALFAMPRIDINE [Concomitant]
     Active Substance: DALFAMPRIDINE
     Dosage: 2 DF, QD
     Route: 048
     Dates: start: 202207
  3. MIRENA [Concomitant]
     Active Substance: LEVONORGESTREL
     Dosage: 1 DF, SINGLE (TOTAL)
     Route: 015

REACTIONS (2)
  - Organising pneumonia [Recovering/Resolving]
  - Intentional product use issue [Unknown]

NARRATIVE: CASE EVENT DATE: 20231001
